FAERS Safety Report 21094111 (Version 10)
Quarter: 2024Q1

REPORT INFORMATION
  Report Type: Spontaneous
  Country: US (occurrence: US)
  Receive Date: 20220718
  Receipt Date: 20240219
  Transmission Date: 20240410
  Serious: Yes (Hospitalization, Other)
  Sender: FDA-Public Use
  Company Number: US-SA-2022SA281619

PATIENT
  Age: 42 Year
  Sex: Male

DRUGS (8)
  1. ELOCTATE [Suspect]
     Active Substance: EFMOROCTOCOG ALFA
     Indication: Back pain
     Dosage: 3200 U, PRN (INFUSE 3200 UNITS IV DAILY PRN AD)
     Route: 042
     Dates: start: 20220710
  2. ELOCTATE [Suspect]
     Active Substance: EFMOROCTOCOG ALFA
     Indication: Back pain
     Dosage: 3200 U, PRN (INFUSE 3200 UNITS IV DAILY PRN AD)
     Route: 042
     Dates: start: 20220710
  3. ELOCTATE [Suspect]
     Active Substance: EFMOROCTOCOG ALFA
     Indication: Arthralgia
     Dosage: 3000 U, QOD
     Route: 042
  4. ELOCTATE [Suspect]
     Active Substance: EFMOROCTOCOG ALFA
     Indication: Arthralgia
     Dosage: 3000 U, QOD
     Route: 042
  5. ELOCTATE [Suspect]
     Active Substance: EFMOROCTOCOG ALFA
     Indication: Pain
     Dosage: UNK UNK, QD
     Route: 042
     Dates: start: 202311
  6. ELOCTATE [Suspect]
     Active Substance: EFMOROCTOCOG ALFA
     Indication: Pain
     Dosage: UNK UNK, QD
     Route: 042
     Dates: start: 202311
  7. ELOCTATE [Suspect]
     Active Substance: EFMOROCTOCOG ALFA
     Dosage: UNK UNK, QOD (PROPHY)
     Route: 042
     Dates: start: 2023
  8. ELOCTATE [Suspect]
     Active Substance: EFMOROCTOCOG ALFA
     Dosage: UNK UNK, QOD (PROPHY)
     Route: 042
     Dates: start: 2023

REACTIONS (13)
  - Cardiac failure [Unknown]
  - Spontaneous haemorrhage [Recovered/Resolved]
  - Haemorrhage [Not Recovered/Not Resolved]
  - Gout [Unknown]
  - Rheumatoid arthritis [Unknown]
  - Peripheral swelling [Unknown]
  - Neck pain [Unknown]
  - Nasopharyngitis [Unknown]
  - Influenza [Unknown]
  - Haemorrhage [Recovering/Resolving]
  - Joint swelling [Unknown]
  - Arthralgia [Not Recovered/Not Resolved]
  - Product use in unapproved indication [Unknown]

NARRATIVE: CASE EVENT DATE: 20220710
